FAERS Safety Report 8025538-X (Version None)
Quarter: 2012Q1

REPORT INFORMATION
  Report Type: 
  Country: None (occurrence: None)
  Receive Date: 20120105
  Receipt Date: 20111229
  Transmission Date: 20120608
  Serious: No
  Sender: FDA-Public Use
  Company Number: US-B.I. PHARMACEUTICALS,INC./RIDGEFIELD-2012-BP-00005BP

PATIENT
  Sex: Male

DRUGS (2)
  1. ZANTAC 150 [Suspect]
     Indication: DYSPEPSIA
     Dosage: 300 MG
     Route: 048
     Dates: start: 20050101
  2. ZANTAC 150 [Suspect]

REACTIONS (4)
  - HEART RATE INCREASED [None]
  - ABDOMINAL PAIN UPPER [None]
  - DYSPHAGIA [None]
  - RETCHING [None]
